FAERS Safety Report 5170508-2 (Version None)
Quarter: 2006Q4

REPORT INFORMATION
  Report Type: 
  Country: None (occurrence: None)
  Receive Date: 20061204
  Receipt Date: 20061122
  Transmission Date: 20070319
  Serious: Yes (Other)
  Sender: FDA-Public Use
  Company Number: HQWYE458127NOV06

PATIENT
  Age: 71 Year
  Sex: Male

DRUGS (1)
  1. ARTANE [Suspect]
     Indication: PARKINSON'S DISEASE
     Dosage: 2 MG 1X PER 1 DAY; ORAL
     Route: 048
     Dates: start: 20061024, end: 20061029

REACTIONS (3)
  - CONFUSIONAL STATE [None]
  - HALLUCINATION [None]
  - HALLUCINATION, AUDITORY [None]
